FAERS Safety Report 7327660-X (Version None)
Quarter: 2011Q1

REPORT INFORMATION
  Report Type: 
  Country: None (occurrence: None)
  Receive Date: 20110303
  Receipt Date: 20110216
  Transmission Date: 20110831
  Serious: Yes (Life-Threatening, Hospitalization, Other)
  Sender: FDA-Public Use
  Company Number: US-BAYER-201035975NA

PATIENT
  Sex: Female
  Weight: 114.29 kg

DRUGS (11)
  1. YASMIN [Suspect]
     Indication: UNEVALUABLE EVENT
  2. ALBUTEROL [Concomitant]
  3. YASMIN [Suspect]
     Indication: CONTRACEPTION
     Dosage: UNK
     Route: 048
     Dates: start: 20011101, end: 20040201
  4. YASMIN [Suspect]
  5. ASPIRIN [Concomitant]
  6. YASMIN [Suspect]
     Indication: MENSTRUATION IRREGULAR
  7. VIOXX [Concomitant]
     Dosage: 50 MG, QD
  8. DESYREL [Concomitant]
     Dosage: 180 MG, QD
  9. LAMICTAL [Concomitant]
     Dosage: 100 MG, BID
  10. SINGULAIR [Concomitant]
     Dosage: 10 MG, QD
  11. ALLEGRA [Concomitant]
     Dosage: 180 MG, UNK

REACTIONS (7)
  - OEDEMA PERIPHERAL [None]
  - CELLULITIS [None]
  - DEEP VEIN THROMBOSIS [None]
  - THROMBOPHLEBITIS SUPERFICIAL [None]
  - ARRHYTHMIA [None]
  - PAIN IN EXTREMITY [None]
  - VARICOSE VEIN [None]
